FAERS Safety Report 10994481 (Version 1)
Quarter: 2015Q2

REPORT INFORMATION
  Report Type: Spontaneous
  Country: US (occurrence: None)
  Receive Date: 20150406
  Receipt Date: 20150406
  Transmission Date: 20150821
  Serious: Yes (Other)
  Sender: FDA-Public Use
  Company Number: None

PATIENT
  Age: 47 Year
  Sex: Female
  Weight: 56 kg

DRUGS (1)
  1. LIALDA [Suspect]
     Active Substance: MESALAMINE
     Indication: COLITIS MICROSCOPIC
     Dosage: 4 CAPSULES
     Route: 048

REACTIONS (2)
  - Diarrhoea [None]
  - Medication residue present [None]

NARRATIVE: CASE EVENT DATE: 20140701
